FAERS Safety Report 12013308 (Version 2)
Quarter: 2016Q2

REPORT INFORMATION
  Report Type: Spontaneous
  Country: GB (occurrence: GB)
  Receive Date: 20160205
  Receipt Date: 20160405
  Transmission Date: 20160815
  Serious: Yes (Other)
  Sender: FDA-Public Use
  Company Number: GB-AUROBINDO-AUR-APL-2016-00853

PATIENT

DRUGS (9)
  1. LAMOTRIGINE. [Suspect]
     Active Substance: LAMOTRIGINE
     Indication: PRODUCT USED FOR UNKNOWN INDICATION
     Dosage: 200 MG, TWO TIMES A DAY
     Route: 065
  2. LAMOTRIGINE. [Concomitant]
     Active Substance: LAMOTRIGINE
     Indication: EPILEPSY
     Dosage: 100 MG, 2X/DAY
     Route: 048
     Dates: start: 20141016
  3. DIFLUCAN [Suspect]
     Active Substance: FLUCONAZOLE
     Indication: PRODUCT USED FOR UNKNOWN INDICATION
     Dosage: 1 DF, WEEKLY
     Route: 065
  4. FLUCLOXACILLIN [Concomitant]
     Active Substance: FLUCLOXACILLIN
     Indication: BACTERIAL INFECTION
     Dosage: 1000 MG, 4X/DAY
     Route: 048
     Dates: start: 20160109, end: 20160113
  5. FLUCONAZOLE. [Suspect]
     Active Substance: FLUCONAZOLE
     Dosage: 150 MG, 1 CAPSULE EVERY THREE DAYS FOR 3 DOSES
     Route: 048
     Dates: start: 20160105
  6. FLUCONAZOLE. [Suspect]
     Active Substance: FLUCONAZOLE
     Indication: VULVOVAGINAL CANDIDIASIS
     Dosage: 150 MG, 1 CAPSULE WEEKLY FOR A MONTH
     Route: 048
     Dates: start: 20160105, end: 20160113
  7. LIDOCAINE. [Concomitant]
     Active Substance: LIDOCAINE
     Indication: PRODUCT USED FOR UNKNOWN INDICATION
     Dosage: UNK
     Route: 065
  8. GYNO-DAKTARIN [Concomitant]
     Active Substance: MICONAZOLE
     Indication: PRODUCT USED FOR UNKNOWN INDICATION
     Dosage: UNK
     Route: 065
  9. DIFLUCAN [Suspect]
     Active Substance: FLUCONAZOLE
     Dosage: 1 CAPSULE EVERY THREE DAYS OF THE WEEK

REACTIONS (5)
  - Dizziness [Recovered/Resolved]
  - Vomiting projectile [Recovered/Resolved]
  - Seizure [Recovered/Resolved]
  - Headache [Recovered/Resolved]
  - Fall [Recovered/Resolved]

NARRATIVE: CASE EVENT DATE: 201601
